FAERS Safety Report 10703905 (Version 2)
Quarter: 2015Q1

REPORT INFORMATION
  Report Type: Spontaneous
  Country: US (occurrence: US)
  Receive Date: 20150112
  Receipt Date: 20150121
  Transmission Date: 20150721
  Serious: No
  Sender: FDA-Public Use
  Company Number: US-009507513-1412USA007761

PATIENT
  Age: 71 Year
  Sex: Female
  Weight: 77 kg

DRUGS (1)
  1. MAXALT [Suspect]
     Active Substance: RIZATRIPTAN BENZOATE
     Indication: MIGRAINE
     Dosage: 10 MG, UNK
     Route: 048

REACTIONS (1)
  - Vasoconstriction [Unknown]
